FAERS Safety Report 6299254-9 (Version None)
Quarter: 2009Q3

REPORT INFORMATION
  Report Type: 
  Country: None (occurrence: None)
  Receive Date: 20090804
  Receipt Date: 20090727
  Transmission Date: 20100115
  Serious: Yes (Hospitalization)
  Sender: FDA-Public Use
  Company Number: MSTR-NO-0907S-0142

PATIENT
  Age: 64 Year
  Sex: Male

DRUGS (1)
  1. METASTRON [Suspect]
     Indication: METASTATIC PAIN
     Dosage: SINGLE DOSE, I.V.
     Route: 042
     Dates: start: 20081029, end: 20081029

REACTIONS (11)
  - ANAEMIA [None]
  - BACK PAIN [None]
  - C-REACTIVE PROTEIN INCREASED [None]
  - DISEASE PROGRESSION [None]
  - GASTROINTESTINAL PERFORATION [None]
  - NAUSEA [None]
  - PERINEAL PAIN [None]
  - PERITONITIS [None]
  - PUBIC PAIN [None]
  - PYREXIA [None]
  - RED BLOOD CELL COUNT DECREASED [None]
